FAERS Safety Report 4871003-8 (Version None)
Quarter: 2005Q4

REPORT INFORMATION
  Report Type: 
  Country: None (occurrence: None)
  Receive Date: 20051228
  Receipt Date: 20051213
  Transmission Date: 20060501
  Serious: Yes (Other)
  Sender: FDA-Public Use
  Company Number: US_0501111344

PATIENT
  Age: 28 Year
  Sex: Male
  Weight: 184.1 kg

DRUGS (3)
  1. ZYPREXA [Suspect]
     Indication: BIPOLAR DISORDER
     Dosage: 10 MG, DAILY (1/D), ORAL
     Route: 048
     Dates: start: 20020328, end: 20020606
  2. LITHOBID [Concomitant]
  3. SEROQUEL [Concomitant]

REACTIONS (9)
  - AMNESIA [None]
  - CONSTIPATION [None]
  - DIABETES MELLITUS NON-INSULIN-DEPENDENT [None]
  - DYSARTHRIA [None]
  - HYPERTENSION [None]
  - HYPERTRIGLYCERIDAEMIA [None]
  - INCREASED APPETITE [None]
  - METABOLIC SYNDROME [None]
  - WEIGHT INCREASED [None]
